FAERS Safety Report 20911067 (Version 2)
Quarter: 2022Q2

REPORT INFORMATION
  Report Type: Spontaneous
  Country: US (occurrence: US)
  Receive Date: 20220603
  Receipt Date: 20220608
  Transmission Date: 20220720
  Serious: Yes (Disabling, Other)
  Sender: FDA-Public Use
  Company Number: US-SA-SAC20220531001555

PATIENT
  Sex: Male

DRUGS (1)
  1. ZANTAC [Suspect]
     Active Substance: RANITIDINE HYDROCHLORIDE
     Dosage: UNK
     Dates: start: 1983, end: 2019

REACTIONS (3)
  - Prostate cancer [Unknown]
  - Disability [Unknown]
  - Deformity [Unknown]

NARRATIVE: CASE EVENT DATE: 20140501
